FAERS Safety Report 8924497 (Version 3)
Quarter: 2014Q1

REPORT INFORMATION
  Report Type: Report from Study
  Country: GB (occurrence: GB)
  Receive Date: 20121126
  Receipt Date: 20140321
  Transmission Date: 20141002
  Serious: Yes (Hospitalization)
  Sender: FDA-Public Use
  Company Number: GB-ROCHE-1159944

PATIENT
  Age: 86 Year
  Sex: Male
  Weight: 59 kg

DRUGS (16)
  1. RANIBIZUMAB [Suspect]
     Indication: AGE-RELATED MACULAR DEGENERATION
     Dosage: 0.5 MG/0.05 ML, LATEST RECEIVED DATE: 22/JUN/2012
     Route: 050
     Dates: start: 20101005
  2. RANIBIZUMAB [Suspect]
     Dosage: 0.5MG/0.5ML
     Route: 050
     Dates: start: 20120221
  3. ASPIRIN [Concomitant]
     Route: 065
  4. ASPIRIN [Concomitant]
     Route: 065
     Dates: start: 20130820
  5. TICAGRELOR [Concomitant]
     Route: 065
  6. TICAGRELOR [Concomitant]
     Route: 065
     Dates: start: 20130820
  7. SIMVASTATIN [Concomitant]
     Route: 065
  8. SIMVASTATIN [Concomitant]
     Route: 065
     Dates: start: 20130820
  9. BISOPROLOL [Concomitant]
     Route: 065
  10. BISOPROLOL [Concomitant]
     Route: 065
     Dates: start: 20130820
  11. RAMIPRIL [Concomitant]
     Route: 065
  12. RAMIPRIL [Concomitant]
     Route: 065
     Dates: start: 20130820
  13. ATORVASTATIN [Concomitant]
     Route: 065
  14. ATORVASTATIN [Concomitant]
     Route: 065
     Dates: start: 20130820
  15. GTN SPRAY [Concomitant]
     Route: 065
  16. GTN SPRAY [Concomitant]
     Route: 065
     Dates: start: 20130820

REACTIONS (3)
  - Myocardial infarction [Recovered/Resolved]
  - Chest pain [Unknown]
  - Circulatory collapse [Unknown]
